FAERS Safety Report 5480781-9 (Version None)
Quarter: 2007Q3

REPORT INFORMATION
  Report Type: 
  Country: None (occurrence: None)
  Receive Date: 20070917
  Receipt Date: 20070730
  Transmission Date: 20080115
  Serious: Yes (Hospitalization)
  Sender: FDA-Public Use
  Company Number: BDI-009859

PATIENT
  Age: 44 Year
  Sex: Female

DRUGS (2)
  1. MULTIHANCE [Suspect]
     Indication: HEADACHE
     Dosage: 15 ML ONCE IV
     Route: 042
     Dates: start: 20070725, end: 20070725
  2. MULTIHANCE [Suspect]
     Indication: NUCLEAR MAGNETIC RESONANCE IMAGING
     Dosage: 15 ML ONCE IV
     Route: 042
     Dates: start: 20070725, end: 20070725

REACTIONS (1)
  - HYPERSENSITIVITY [None]
